FAERS Safety Report 8608718-1 (Version None)
Quarter: 2012Q3

REPORT INFORMATION
  Report Type: 
  Country: None (occurrence: None)
  Receive Date: 20120821
  Receipt Date: 20111205
  Transmission Date: 20120928
  Serious: No
  Sender: FDA-Public Use
  Company Number: US-MYLANLABS-2011S1025142

PATIENT
  Sex: Male

DRUGS (1)
  1. LISINOPRIL [Suspect]
     Dates: start: 19910101

REACTIONS (1)
  - HYPERSENSITIVITY [None]
